FAERS Safety Report 8224626-2 (Version None)
Quarter: 2012Q1

REPORT INFORMATION
  Report Type: 
  Country: None (occurrence: None)
  Receive Date: 20120319
  Receipt Date: 20120312
  Transmission Date: 20120608
  Serious: Yes (Death)
  Sender: FDA-Public Use
  Company Number: DAV-AE-MTX-12-17

PATIENT
  Age: 85 Year
  Sex: Female

DRUGS (17)
  1. RHEUMATREX [Suspect]
     Indication: RHEUMATOID ARTHRITIS
     Dosage: 2 MILLIGRAM 1 WEEK
     Dates: end: 20110302
  2. MECOBALAMIN [Concomitant]
  3. FOSAMAX [Concomitant]
  4. FERROMIA (FERROUS SODIUM CITRATE) [Concomitant]
  5. BLOPRESS (CANDESARTAN CILEXETIL) [Concomitant]
  6. CEFTRIAXONE SODIUM [Concomitant]
  7. LASIX [Concomitant]
  8. ORENICA FOR INJ 250 MG/VIAL (ABATACEPT) [Suspect]
     Indication: RHEUMATOID ARTHRITIS
     Dosage: 500 MILLIGRAM, IVD
     Route: 041
     Dates: start: 20110226
  9. PREDNISOLONE [Concomitant]
  10. MOBIC [Concomitant]
  11. AMLODIPINE BESYLATE [Concomitant]
  12. EPOGEN [Concomitant]
  13. CEROCRAL (IFENPRODIL TARTRATE) [Concomitant]
  14. FOLIC ACID [Concomitant]
  15. MUCODYNE (CARBOCISTEINE) [Concomitant]
  16. AZULFIDINE [Suspect]
  17. RANITAC (RANITIDINE HCL) [Concomitant]

REACTIONS (5)
  - CONDITION AGGRAVATED [None]
  - REFUSAL OF TREATMENT BY PATIENT [None]
  - CARDIAC FAILURE [None]
  - MYELODYSPLASTIC SYNDROME [None]
  - STOMATITIS [None]
